FAERS Safety Report 26074396 (Version 1)
Quarter: 2025Q4

REPORT INFORMATION
  Report Type: Spontaneous
  Country: US (occurrence: US)
  Receive Date: 20251121
  Receipt Date: 20251121
  Transmission Date: 20260118
  Serious: No
  Sender: UROGEN PHARMA
  Company Number: US-UROGEN PHARMA LTD.-2025-UGN-000174

PATIENT

DRUGS (6)
  1. ZUSDURI [Suspect]
     Active Substance: MITOMYCIN
     Indication: Product used for unknown indication
     Dosage: 56 MILLILITER, ONCE A WEEK (INSTILLATION)
     Dates: start: 20250822, end: 20250822
  2. ZUSDURI [Suspect]
     Active Substance: MITOMYCIN
     Dosage: 56 MILLILITER, ONCE A WEEK (INSTILLATION)
     Dates: start: 20250829, end: 20250829
  3. ZUSDURI [Suspect]
     Active Substance: MITOMYCIN
     Dosage: 56 MILLILITER, ONCE A WEEK (INSTILLATION)
     Dates: start: 20250905, end: 20250905
  4. ZUSDURI [Suspect]
     Active Substance: MITOMYCIN
     Dosage: 56 MILLILITER, ONCE A WEEK (INSTILLATION)
     Dates: start: 20250912, end: 20250912
  5. ZUSDURI [Suspect]
     Active Substance: MITOMYCIN
     Dosage: 56 MILLILITER, ONCE A WEEK (INSTILLATION)
     Dates: start: 20250919, end: 20250919
  6. ZUSDURI [Suspect]
     Active Substance: MITOMYCIN
     Dosage: 52 MILLILITER, ONCE A WEEK (INSTILLATION)
     Dates: start: 20250926, end: 20250926

REACTIONS (2)
  - Accidental exposure to product [Unknown]
  - Device dislocation [Unknown]

NARRATIVE: CASE EVENT DATE: 20250926
